FAERS Safety Report 17439327 (Version 1)
Quarter: 2020Q1

REPORT INFORMATION
  Report Type: Spontaneous
  Country: US (occurrence: US)
  Receive Date: 20200219
  Receipt Date: 20200219
  Transmission Date: 20200409
  Serious: Yes (Other)
  Sender: FDA-Public Use
  Company Number: None

PATIENT
  Age: 95 Year
  Sex: Male
  Weight: 85.05 kg

DRUGS (22)
  1. FUROSEMIDE 40MG [Concomitant]
     Active Substance: FUROSEMIDE
  2. TAMSULOSIN 0.4MG [Concomitant]
     Active Substance: TAMSULOSIN
  3. NITROGLYCERIN 0.4MG [Concomitant]
  4. POTASSIUM CL ER 20 MEQ [Concomitant]
  5. ATORVASTATIN 10MG [Concomitant]
     Active Substance: ATORVASTATIN
  6. ESCITALOPRAM [Concomitant]
     Active Substance: ESCITALOPRAM OXALATE
  7. HCTZ 12.5MG [Concomitant]
  8. OMEPRAZOLE 20MG [Concomitant]
     Active Substance: OMEPRAZOLE
  9. LEVEMIR PEN [Concomitant]
  10. ABIRATERONE ACETATE. [Suspect]
     Active Substance: ABIRATERONE ACETATE
     Indication: PROSTATE CANCER
     Dates: start: 20191022, end: 20200219
  11. METOPROLOL SUCCINATE ER 25MG [Concomitant]
  12. APIXABAN 2.5MG [Concomitant]
     Active Substance: APIXABAN
  13. FINASTERIDE 5MG [Concomitant]
     Active Substance: FINASTERIDE
  14. BETHANECHOL CL 50MG [Concomitant]
  15. TRANDOLAPRIL. [Concomitant]
     Active Substance: TRANDOLAPRIL
  16. GLIPIZIDE 10MG [Concomitant]
     Active Substance: GLIPIZIDE
  17. OXYBUTYNIN 10MG [Concomitant]
  18. XTANDI [Concomitant]
     Active Substance: ENZALUTAMIDE
     Dates: start: 20200219
  19. NOVOLOG [Concomitant]
     Active Substance: INSULIN ASPART
  20. JANUVIA [Concomitant]
     Active Substance: SITAGLIPTIN PHOSPHATE
  21. SENNA/DOCUSATE [Concomitant]
  22. AMLODIPINE [Concomitant]
     Active Substance: AMLODIPINE BESYLATE

REACTIONS (1)
  - Prostate cancer [None]

NARRATIVE: CASE EVENT DATE: 20200219
